FAERS Safety Report 8249750-X (Version None)
Quarter: 2012Q2

REPORT INFORMATION
  Report Type: 
  Country: None (occurrence: None)
  Receive Date: 20120402
  Receipt Date: 20120321
  Transmission Date: 20120825
  Serious: Yes (Hospitalization)
  Sender: FDA-Public Use
  Company Number: PHHY2012FR025280

PATIENT
  Sex: Male

DRUGS (8)
  1. FLUVOXAMINE MALEATE [Concomitant]
     Dosage: 100 MG, BID
  2. SMECTA ^DAE WOONG^ [Concomitant]
  3. OMEPRAZOLE [Concomitant]
     Dosage: 20 MG, QD
     Dates: start: 20110801
  4. HEPT-A-MYL [Concomitant]
     Indication: ORTHOSTATIC HYPOTENSION
     Dosage: 187.8 MG, BID
  5. CLOZAPINE [Suspect]
     Dosage: 50 MG, QD
     Dates: start: 20120113
  6. LOXAPINE HCL [Concomitant]
     Indication: SCHIZOPHRENIA, PARANOID TYPE
     Dosage: 25 DRP, UNK
  7. CLOZAPINE [Suspect]
     Indication: SCHIZOPHRENIA, PARANOID TYPE
     Dosage: 200 MG, QD
  8. LORAZEPAM [Concomitant]
     Indication: ANXIETY
     Dosage: 1 MG, BID

REACTIONS (7)
  - GASTROENTERITIS [None]
  - PROCTITIS [None]
  - ABDOMINAL PAIN UPPER [None]
  - DIARRHOEA HAEMORRHAGIC [None]
  - C-REACTIVE PROTEIN INCREASED [None]
  - COLITIS [None]
  - ABDOMINAL PAIN [None]
